FAERS Safety Report 25138836 (Version 1)
Quarter: 2025Q1

REPORT INFORMATION
  Report Type: Report from Study
  Country: IN (occurrence: IN)
  Receive Date: 20250331
  Receipt Date: 20250331
  Transmission Date: 20250409
  Serious: Yes (Death, Other)
  Sender: ALEXION PHARMACEUTICALS
  Company Number: IN-AstraZeneca-CH-00836704A

PATIENT
  Age: 55 Year

DRUGS (1)
  1. DURVALUMAB [Suspect]
     Active Substance: DURVALUMAB
     Indication: Biliary neoplasm

REACTIONS (3)
  - Neoplasm malignant [Fatal]
  - Cerebral haemorrhage [Fatal]
  - Conjunctivitis [Fatal]
